FAERS Safety Report 6729629-2 (Version None)
Quarter: 2010Q2

REPORT INFORMATION
  Report Type: 
  Country: None (occurrence: None)
  Receive Date: 20100512
  Receipt Date: 20100428
  Transmission Date: 20101027
  Serious: Yes (Hospitalization)
  Sender: FDA-Public Use
  Company Number: 1-22426037

PATIENT
  Age: 77 Year
  Sex: Female
  Weight: 52.1637 kg

DRUGS (7)
  1. FENTANYL-25 [Suspect]
     Indication: PAIN
     Dosage: (SEE B.5), Q 3 DAYS, TRANSDERMAL
     Route: 062
     Dates: start: 20091215
  2. LEVOTHYROXINE SODIUM [Concomitant]
  3. METOPROLOL TARTRATE [Concomitant]
  4. FLEXERIL [Concomitant]
  5. ZYPREXA [Concomitant]
  6. TYLENOL (CAPLET) [Concomitant]
  7. IBUPROFEN [Concomitant]

REACTIONS (3)
  - CONSTIPATION [None]
  - INSOMNIA [None]
  - URINARY RETENTION [None]
